FAERS Safety Report 15946188 (Version 1)
Quarter: 2019Q1

REPORT INFORMATION
  Report Type: Spontaneous
  Country: CZ (occurrence: CZ)
  Receive Date: 20190211
  Receipt Date: 20190211
  Transmission Date: 20190417
  Serious: Yes (Hospitalization, Other)
  Sender: FDA-Public Use
  Company Number: PHHY2019CZ029446

PATIENT
  Age: 45 Year

DRUGS (3)
  1. PACLITAXEL. [Suspect]
     Active Substance: PACLITAXEL
     Indication: OVARIAN CANCER
     Dosage: TOTAL OF THREE SERIES OF ADJUVANT CHEMOTHERAPY WERE ADMINISTERED
     Route: 065
  2. GEMCITABINE [Suspect]
     Active Substance: GEMCITABINE\GEMCITABINE HYDROCHLORIDE
     Indication: OVARIAN CANCER
     Dosage: UNK
     Route: 065
  3. CARBOPLATIN. [Suspect]
     Active Substance: CARBOPLATIN
     Indication: OVARIAN CANCER
     Dosage: TOTAL OF THREE SERIES OF ADJUVANT CHEMOTHERAPY WERE ADMINISTERED
     Route: 065

REACTIONS (4)
  - Dyspepsia [Unknown]
  - Vomiting [Unknown]
  - Neutropenia [Unknown]
  - Abdominal pain [Unknown]
